FAERS Safety Report 19206790 (Version 7)
Quarter: 2022Q1

REPORT INFORMATION
  Report Type: Spontaneous
  Country: US (occurrence: US)
  Receive Date: 20210430
  Receipt Date: 20220218
  Transmission Date: 20220423
  Serious: No
  Sender: FDA-Public Use
  Company Number: US-BRISTOL-MYERS SQUIBB COMPANY-BMS-2021-042325

PATIENT
  Age: 53 Year
  Sex: Female

DRUGS (5)
  1. ORENCIA [Suspect]
     Active Substance: ABATACEPT
     Indication: Rheumatoid arthritis
     Dosage: 125 MILLIGRAM, QWK
     Route: 058
     Dates: start: 202002
  2. ORENCIA [Suspect]
     Active Substance: ABATACEPT
     Indication: Rheumatoid arthritis
     Dosage: 125 MILLIGRAM, QWK
     Route: 058
     Dates: start: 202002
  3. ORENCIA [Suspect]
     Active Substance: ABATACEPT
     Dosage: 235 MILLIGRAM, QWK
     Route: 058
     Dates: start: 202012
  4. ORENCIA [Suspect]
     Active Substance: ABATACEPT
     Dosage: 235 MILLIGRAM, QWK
     Route: 058
     Dates: start: 202012
  5. ACETAMINOPHEN [Suspect]
     Active Substance: ACETAMINOPHEN
     Indication: Product used for unknown indication
     Dosage: UNK
     Route: 065

REACTIONS (6)
  - Pain [Unknown]
  - Arthralgia [Not Recovered/Not Resolved]
  - Drug ineffective [Unknown]
  - Hypersensitivity [Unknown]
  - Prescribed overdose [Unknown]
  - Joint swelling [Unknown]

NARRATIVE: CASE EVENT DATE: 20210301
